FAERS Safety Report 10654644 (Version 2)
Quarter: 2015Q1

REPORT INFORMATION
  Report Type: Spontaneous
  Country: US (occurrence: US)
  Receive Date: 20141216
  Receipt Date: 20150128
  Transmission Date: 20150720
  Serious: Yes (Death, Hospitalization)
  Sender: FDA-Public Use
  Company Number: US-ACTELION-A-US2014-109480

PATIENT
  Age: 68 Year
  Sex: Female

DRUGS (13)
  1. CALCIUM [Concomitant]
     Active Substance: CALCIUM
     Dosage: UNK
     Dates: end: 20150114
  2. POTASSIUM [Concomitant]
     Active Substance: POTASSIUM
  3. ASPIRIN. [Concomitant]
     Active Substance: ASPIRIN
  4. REMODULIN [Concomitant]
     Active Substance: TREPROSTINIL
  5. WELCHOL [Concomitant]
     Active Substance: COLESEVELAM HYDROCHLORIDE
  6. OPSUMIT [Suspect]
     Active Substance: MACITENTAN
     Indication: PULMONARY ARTERIAL HYPERTENSION
     Dosage: 10 MG, QD
     Route: 048
     Dates: start: 201408
  7. MAGNESIUM [Concomitant]
     Active Substance: MAGNESIUM
  8. NASONEX [Concomitant]
     Active Substance: MOMETASONE FUROATE
  9. LANSOPRAZOLE. [Concomitant]
     Active Substance: LANSOPRAZOLE
  10. CREON [Concomitant]
     Active Substance: PANCRELIPASE AMYLASE\PANCRELIPASE LIPASE\PANCRELIPASE PROTEASE
  11. IRON [Concomitant]
     Active Substance: IRON
  12. PEPCID [Concomitant]
     Active Substance: FAMOTIDINE
  13. NORVASC [Concomitant]
     Active Substance: AMLODIPINE BESYLATE

REACTIONS (6)
  - Death [Fatal]
  - Pulmonary arterial hypertension [Unknown]
  - Dyspnoea [Unknown]
  - Pneumonia [Unknown]
  - Pericardial effusion [Unknown]
  - Condition aggravated [Unknown]

NARRATIVE: CASE EVENT DATE: 20141121
